FAERS Safety Report 15899294 (Version 1)
Quarter: 2019Q1

REPORT INFORMATION
  Report Type: Spontaneous
  Country: US (occurrence: US)
  Receive Date: 20190201
  Receipt Date: 20190201
  Transmission Date: 20190417
  Serious: Yes (Other)
  Sender: FDA-Public Use
  Company Number: PHEH2019US003871

PATIENT
  Sex: Male

DRUGS (1)
  1. AFINITOR [Suspect]
     Active Substance: EVEROLIMUS
     Indication: PRODUCT USED FOR UNKNOWN INDICATION
     Dosage: UNK, QD
     Route: 048

REACTIONS (16)
  - Urinary retention [Unknown]
  - Carcinoid tumour of the small bowel [Unknown]
  - Iron deficiency anaemia [Unknown]
  - Cardiac failure congestive [Unknown]
  - Platelet count increased [Unknown]
  - Hypertension [Unknown]
  - Cataract [Unknown]
  - Anxiety [Unknown]
  - Weight decreased [Unknown]
  - Cardiomyopathy [Unknown]
  - Gastrooesophageal reflux disease [Unknown]
  - Diarrhoea [Unknown]
  - Carcinoid tumour of the liver [Unknown]
  - Blood potassium decreased [Unknown]
  - Lymphocyte count increased [Unknown]
  - Abdominal lymphadenopathy [Unknown]
